FAERS Safety Report 8312518-X (Version None)
Quarter: 2012Q2

REPORT INFORMATION
  Report Type: 
  Country: None (occurrence: None)
  Receive Date: 20120425
  Receipt Date: 20120420
  Transmission Date: 20120825
  Serious: Yes (Hospitalization)
  Sender: FDA-Public Use
  Company Number: AU-MERCK-1201USA02716

PATIENT
  Age: 80 Year
  Sex: Male

DRUGS (9)
  1. METFORMIN HCL [Concomitant]
     Indication: DIABETES MELLITUS
     Route: 065
  2. JANUVIA [Suspect]
     Route: 048
     Dates: start: 20111223, end: 20120112
  3. LIPITOR [Concomitant]
     Indication: BLOOD CHOLESTEROL
     Route: 065
  4. CARVEDILOL [Concomitant]
     Route: 065
  5. MINIPRESS [Concomitant]
     Route: 065
  6. IRBESARTAN [Concomitant]
     Indication: BLOOD PRESSURE
     Dosage: IN THE MORNING
     Route: 065
  7. LERCANIDIPINE [Concomitant]
     Indication: DIABETES MELLITUS
     Dosage: IN THE MORNING
     Route: 065
     Dates: start: 20120116
  8. JANUVIA [Suspect]
     Dosage: 25 MG (50 MG TABLET CUT IN HALF)
     Route: 048
     Dates: start: 20120101
  9. DIAMICRON MR [Concomitant]
     Indication: DIABETES MELLITUS
     Dosage: 2 TABLET IN DOSE
     Route: 065

REACTIONS (2)
  - WRONG TECHNIQUE IN DRUG USAGE PROCESS [None]
  - BLOOD GLUCOSE INCREASED [None]
